FAERS Safety Report 24339782 (Version 2)
Quarter: 2024Q4

REPORT INFORMATION
  Report Type: Report from Study
  Country: MX (occurrence: MX)
  Receive Date: 20240919
  Receipt Date: 20241010
  Transmission Date: 20250115
  Serious: Yes (Other)
  Sender: ROCHE
  Company Number: MX-ROCHE-10000085694

PATIENT
  Age: 33 Year
  Sex: Female
  Weight: 72 kg

DRUGS (1)
  1. OCREVUS [Suspect]
     Active Substance: OCRELIZUMAB
     Indication: Multiple sclerosis
     Route: 042
     Dates: start: 20221006

REACTIONS (10)
  - Pharyngitis [Recovering/Resolving]
  - Influenza [Recovered/Resolved]
  - Tongue pruritus [Recovered/Resolved]
  - Tongue pruritus [Recovered/Resolved]
  - Multiple sclerosis [Recovered/Resolved]
  - Hypoaesthesia oral [Recovered/Resolved]
  - Injury [Recovered/Resolved]
  - Hypoaesthesia oral [Recovered/Resolved]
  - Pruritus [Recovered/Resolved]
  - Hypoaesthesia [Recovered/Resolved]

NARRATIVE: CASE EVENT DATE: 20230101
